FAERS Safety Report 8391590-5 (Version None)
Quarter: 2012Q1

REPORT INFORMATION
  Report Type: 
  Country: None (occurrence: None)
  Receive Date: 20120323
  Receipt Date: 20110225
  Transmission Date: 20120608
  Serious: Yes (Other)
  Sender: FDA-Public Use
  Company Number: 163-21880-11023226

PATIENT
  Age: 79 Year
  Sex: Female
  Weight: 62.1428 kg

DRUGS (8)
  1. DIOVAN [Concomitant]
  2. SALSALATE (SALSALATE) [Concomitant]
  3. REVLIMID [Suspect]
     Indication: MULTIPLE MYELOMA
     Dosage: 25 MG, DAILY 21/7, PO
     Route: 048
     Dates: start: 20110218, end: 20110222
  4. LIDODERM [Concomitant]
  5. FISH OIL (FISH OIL) [Concomitant]
  6. HYDROCODONE BITARTRATE [Concomitant]
  7. DEXAMETHASONE [Concomitant]
  8. ASPIRIN [Concomitant]

REACTIONS (2)
  - NAUSEA [None]
  - VOMITING [None]
